FAERS Safety Report 4314139-2 (Version None)
Quarter: 2004Q1

REPORT INFORMATION
  Report Type: 
  Country: None (occurrence: None)
  Receive Date: 20040308
  Receipt Date: 20040308
  Transmission Date: 20041129
  Serious: No
  Sender: FDA-Public Use
  Company Number: None

PATIENT
  Sex: Male
  Weight: 74.8435 kg

DRUGS (3)
  1. LOVASTATIN [Suspect]
     Indication: HYPERLIPIDAEMIA
     Dosage: 20 MG PO QD
     Route: 048
  2. CLINDAMYCIN HCL [Suspect]
     Dosage: 600 MG IV Q 8H
  3. CEFUROXIME [Suspect]
     Indication: PNEUMONIA ASPIRATION
     Dosage: 250 MG BID

REACTIONS (3)
  - HEPATOTOXICITY [None]
  - JAUNDICE [None]
  - LIVER FUNCTION TEST ABNORMAL [None]
